FAERS Safety Report 9067806 (Version 1)
Quarter: 2013Q1

REPORT INFORMATION
  Report Type: Spontaneous
  Country: GR (occurrence: GR)
  Receive Date: 20130215
  Receipt Date: 20130215
  Transmission Date: 20140127
  Serious: Yes (Hospitalization)
  Sender: FDA-Public Use
  Company Number: GR-MYLANLABS-2013S1002681

PATIENT
  Age: 24 Year
  Sex: Male

DRUGS (2)
  1. SODIUM VALPROATE [Suspect]
     Indication: EPILEPSY
     Route: 065
  2. RISPERIDONE [Interacting]
     Indication: PSYCHOMOTOR HYPERACTIVITY
     Route: 065

REACTIONS (2)
  - Systemic lupus erythematosus [Recovered/Resolved]
  - Drug interaction [Recovered/Resolved]
